FAERS Safety Report 8624151-0 (Version None)
Quarter: 2012Q3

REPORT INFORMATION
  Report Type: 
  Country: None (occurrence: None)
  Receive Date: 20120824
  Receipt Date: 20120824
  Transmission Date: 20120928
  Serious: Yes (Disabling)
  Sender: FDA-Public Use
  Company Number: None

PATIENT
  Sex: Male
  Weight: 108.8633 kg

DRUGS (5)
  1. CELEBREX [Concomitant]
  2. ZOCOR [Concomitant]
  3. ULTRAM [Suspect]
     Indication: PAIN
     Dosage: 1 OR 2 TABLETS BY MOUTH EVERY 6 HOURS
     Route: 048
     Dates: start: 20120725, end: 20120727
  4. AVALIDE [Concomitant]
  5. RESTORIL CAPSULES USP [Concomitant]

REACTIONS (2)
  - NAUSEA [None]
  - DIZZINESS [None]
